FAERS Safety Report 15149777 (Version 3)
Quarter: 2019Q2

REPORT INFORMATION
  Report Type: Spontaneous
  Country: US (occurrence: US)
  Receive Date: 20180716
  Receipt Date: 20190401
  Transmission Date: 20190711
  Serious: No
  Sender: FDA-Public Use
  Company Number: US-VANDA PHARMACEUTICALS, INC-2018TASUS002317

PATIENT
  Age: 60 Year
  Sex: Female

DRUGS (4)
  1. HETLIOZ [Suspect]
     Active Substance: TASIMELTEON
     Indication: NON-24-HOUR SLEEP-WAKE DISORDER
     Dosage: 20 MG, ONCE AT NIGHT
     Route: 048
     Dates: start: 20180424
  2. PAXIL [Concomitant]
     Active Substance: PAROXETINE HYDROCHLORIDE
     Indication: PRODUCT USED FOR UNKNOWN INDICATION
  3. CLONOPIN [Concomitant]
     Active Substance: CLONAZEPAM
     Indication: PRODUCT USED FOR UNKNOWN INDICATION
  4. DEPAKOTE [Concomitant]
     Active Substance: DIVALPROEX SODIUM
     Indication: PRODUCT USED FOR UNKNOWN INDICATION

REACTIONS (9)
  - Apathy [Unknown]
  - Drug ineffective [Unknown]
  - Insomnia [Unknown]
  - Somnolence [Unknown]
  - Inappropriate schedule of product administration [Unknown]
  - Eating disorder [Unknown]
  - Fatigue [Unknown]
  - Nightmare [Unknown]
  - Feeling abnormal [Unknown]
